FAERS Safety Report 18455123 (Version 4)
Quarter: 2021Q1

REPORT INFORMATION
  Report Type: Other
  Country: US (occurrence: US)
  Receive Date: 20201103
  Receipt Date: 20210211
  Transmission Date: 20210419
  Serious: Yes (Other)
  Sender: FDA-Public Use
  Company Number: US-INTERCEPT-PM2020001613

PATIENT
  Sex: Female

DRUGS (14)
  1. VITAMIN D3 [Concomitant]
     Active Substance: CHOLECALCIFEROL
  2. CENTRUM [Concomitant]
     Active Substance: VITAMINS
  3. OCALIVA [Suspect]
     Active Substance: OBETICHOLIC ACID
     Indication: PRIMARY BILIARY CHOLANGITIS
     Dosage: 5 MILLIGRAM, QD
     Route: 048
     Dates: start: 20161021
  4. OCALIVA [Suspect]
     Active Substance: OBETICHOLIC ACID
     Dosage: 5 MILLIGRAM, QD
     Route: 048
  5. OCALIVA [Suspect]
     Active Substance: OBETICHOLIC ACID
     Dosage: 5 MILLIGRAM, QD
     Route: 048
     Dates: end: 20201017
  6. OCALIVA [Suspect]
     Active Substance: OBETICHOLIC ACID
     Dosage: 5 MILLIGRAM, QOD
     Route: 048
  7. OMEPRAZOLE. [Concomitant]
     Active Substance: OMEPRAZOLE
  8. OCALIVA [Suspect]
     Active Substance: OBETICHOLIC ACID
     Dosage: 5 MILLIGRAM, 3X/WK
     Route: 048
     Dates: start: 2020, end: 2020
  9. OCALIVA [Suspect]
     Active Substance: OBETICHOLIC ACID
     Dosage: 5 MILLIGRAM, 4X/WK
     Route: 048
     Dates: start: 2020
  10. OCALIVA [Suspect]
     Active Substance: OBETICHOLIC ACID
     Dosage: 5 MG, EVERY 3 DAYS THEN 1 REST DAY
     Route: 048
  11. OCALIVA [Suspect]
     Active Substance: OBETICHOLIC ACID
     Dosage: 5 MILLIGRAM, QOD
     Route: 048
  12. CALCIUM +D [Concomitant]
     Active Substance: CALCIUM\VITAMIN D
  13. OCALIVA [Suspect]
     Active Substance: OBETICHOLIC ACID
     Dosage: 5 MILLIGRAM, QOD
     Route: 048
  14. URSODEOXYCHOLIC ACID [Concomitant]
     Active Substance: URSODIOL

REACTIONS (27)
  - Lower gastrointestinal haemorrhage [Recovered/Resolved]
  - Haemoglobin abnormal [Unknown]
  - Decreased activity [Unknown]
  - Blood count abnormal [Recovered/Resolved]
  - Drug intolerance [Unknown]
  - Constipation [Unknown]
  - Fatigue [Unknown]
  - Fall [Recovered/Resolved]
  - Somnolence [Unknown]
  - Transfusion [Unknown]
  - Pruritus [Recovered/Resolved]
  - Therapy interrupted [Recovered/Resolved]
  - Diarrhoea [Unknown]
  - Infection [Unknown]
  - Dizziness [Unknown]
  - Inappropriate schedule of product administration [Recovered/Resolved]
  - Product dose omission issue [Recovered/Resolved]
  - Malaise [Unknown]
  - Nausea [Recovering/Resolving]
  - Decreased appetite [Unknown]
  - Wheelchair user [Unknown]
  - Blood alkaline phosphatase abnormal [Unknown]
  - Joint injury [Unknown]
  - Confusional state [Unknown]
  - Sleep deficit [Unknown]
  - Mental disorder [Unknown]
  - Platelet transfusion [Unknown]

NARRATIVE: CASE EVENT DATE: 2020
